FAERS Safety Report 11795336 (Version 2)
Quarter: 2015Q4

REPORT INFORMATION
  Report Type: Spontaneous
  Country: US (occurrence: US)
  Receive Date: 20151202
  Receipt Date: 20151222
  Transmission Date: 20160305
  Serious: Yes (Death, Hospitalization)
  Sender: FDA-Public Use
  Company Number: US-UNITED THERAPEUTICS-UNT-2015-013794

PATIENT
  Age: 32 Year
  Sex: Male
  Weight: 90.7 kg

DRUGS (2)
  1. REMODULIN [Suspect]
     Active Substance: TREPROSTINIL
     Indication: PULMONARY HYPERTENSION
     Dosage: 0.04 ?G/KG, CONTINUING
     Route: 058
     Dates: start: 20150914
  2. ADEMPAS [Concomitant]
     Active Substance: RIOCIGUAT
     Indication: PRODUCT USED FOR UNKNOWN INDICATION

REACTIONS (5)
  - Renal failure [Fatal]
  - Infusion site pain [Not Recovered/Not Resolved]
  - Infusion site oedema [Not Recovered/Not Resolved]
  - Infusion site infection [Unknown]
  - Fungal sepsis [Fatal]

NARRATIVE: CASE EVENT DATE: 201510
